FAERS Safety Report 24564899 (Version 2)
Quarter: 2024Q4

REPORT INFORMATION
  Report Type: Spontaneous
  Country: AR (occurrence: AR)
  Receive Date: 20241030
  Receipt Date: 20241129
  Transmission Date: 20250114
  Serious: No
  Sender: PFIZER
  Company Number: AR-PFIZER INC-202400284204

PATIENT
  Age: 9 Year
  Sex: Male

DRUGS (1)
  1. GENOTROPIN [Suspect]
     Active Substance: SOMATROPIN
     Indication: Short stature
     Dosage: 1.2 MG, DAILY
     Dates: start: 20200617, end: 20241020

REACTIONS (2)
  - Drug dose omission by device [Unknown]
  - Device mechanical issue [Unknown]

NARRATIVE: CASE EVENT DATE: 20241021
